FAERS Safety Report 5096439-4 (Version None)
Quarter: 2006Q3

REPORT INFORMATION
  Report Type: 
  Country: None (occurrence: None)
  Receive Date: 20060905
  Receipt Date: 20060822
  Transmission Date: 20061208
  Serious: No
  Sender: FDA-Public Use
  Company Number: US-JNJFOC-20060506552

PATIENT
  Sex: Female
  Weight: 47.63 kg

DRUGS (4)
  1. DURAGESIC-100 [Suspect]
     Indication: BACK PAIN
     Route: 062
  2. XANAX [Concomitant]
     Indication: ANXIETY
     Route: 048
  3. ATIVAN [Concomitant]
     Indication: ANXIETY
     Route: 048
  4. TYLOX [Concomitant]
     Indication: PAIN
     Dosage: ACETAMINOPHEN 500 MG / OXYCODONE 5 MG, ORAL
     Route: 048

REACTIONS (1)
  - TREMOR [None]
